FAERS Safety Report 8895585 (Version 1)
Quarter: 2012Q4

REPORT INFORMATION
  Report Type: 
  Country: US (occurrence: US)
  Receive Date: 20121108
  Receipt Date: 20121108
  Transmission Date: 20130627
  Serious: Yes (Other)
  Sender: FDA-Public Use
  Company Number: US-ASTRAZENECA-2012SE83347

PATIENT
  Age: 58 Year
  Sex: Female

DRUGS (6)
  1. RHINOCORT AQUA [Suspect]
     Route: 045
     Dates: start: 20120301
  2. SINGULAIR [Suspect]
     Route: 048
     Dates: start: 20120301
  3. BENICAR [Suspect]
     Route: 048
     Dates: start: 20120301
  4. CRESTOR [Concomitant]
     Route: 048
     Dates: start: 20120326
  5. LORATADINE [Concomitant]
     Dosage: 1 TABLET 1 TIME PER DAY AS NEEDED
     Route: 048
     Dates: start: 20121018
  6. ALBUTEROL [Concomitant]
     Dosage: 2 PUFFS EVERY 4-6 HOURS AS NEEDED
     Route: 055
     Dates: start: 20121018

REACTIONS (1)
  - Bone neoplasm [Unknown]
